FAERS Safety Report 9960646 (Version 1)
Quarter: 2014Q1

REPORT INFORMATION
  Report Type: Report from Study
  Country: US (occurrence: US)
  Receive Date: 20140305
  Receipt Date: 20140305
  Transmission Date: 20141002
  Serious: No
  Sender: FDA-Public Use
  Company Number: US-ABBVIE-13P-163-1108851-00

PATIENT
  Age: 39 Year
  Sex: Female

DRUGS (10)
  1. HUMIRA [Suspect]
     Indication: ANKYLOSING SPONDYLITIS
     Dates: start: 20130523
  2. LEXAPRO [Concomitant]
     Indication: ANXIETY
     Dosage: 10 MG DAILY
     Route: 048
  3. SINGULAIR [Concomitant]
     Indication: HYPERSENSITIVITY
     Dosage: 10 MG DAILY
     Route: 048
  4. VITAMIN B12 [Concomitant]
     Indication: PRODUCT USED FOR UNKNOWN INDICATION
  5. ALBUTEROL [Concomitant]
     Indication: BRONCHITIS
  6. ALBUTEROL [Concomitant]
     Indication: ASTHMA
  7. VITAMIN D [Concomitant]
     Indication: VITAMIN D DEFICIENCY
     Route: 048
  8. VITAMIN B [Concomitant]
     Indication: HYPOVITAMINOSIS
     Route: 030
  9. VITAMIN B [Concomitant]
     Indication: VITAMIN B COMPLEX DEFICIENCY
     Dosage: DAILY
     Route: 048
  10. B12 [Concomitant]
     Indication: PRODUCT USED FOR UNKNOWN INDICATION

REACTIONS (4)
  - Oropharyngeal pain [Not Recovered/Not Resolved]
  - Bronchitis [Not Recovered/Not Resolved]
  - Pain [Not Recovered/Not Resolved]
  - Headache [Not Recovered/Not Resolved]
